FAERS Safety Report 7648649-7 (Version None)
Quarter: 2011Q3

REPORT INFORMATION
  Report Type: 
  Country: None (occurrence: None)
  Receive Date: 20110801
  Receipt Date: 20110721
  Transmission Date: 20111222
  Serious: Yes (Hospitalization)
  Sender: FDA-Public Use
  Company Number: PHHY2011US66369

PATIENT
  Age: 34 Year
  Sex: Female
  Weight: 62 kg

DRUGS (6)
  1. LEXAPRO [Concomitant]
     Indication: DEPRESSED MOOD
     Dosage: 10 MG/DAILY
     Dates: start: 20080501
  2. LYRICA [Concomitant]
     Dosage: 100 MG/DAILY
     Dates: start: 20110320
  3. GILENYA [Suspect]
     Indication: MULTIPLE SCLEROSIS
     Dosage: 0.5 MG/DAILY
     Dates: start: 20110214
  4. SOLU-MEDROL [Concomitant]
     Dosage: UNK
     Dates: start: 19940303
  5. BACLOFEN [Concomitant]
     Indication: MUSCLE SPASTICITY
     Dosage: 10 MG/DAILY
     Dates: start: 20080501
  6. CALCIUM 600 PLUS D [Concomitant]
     Dosage: 600 MG, UNK
     Dates: start: 20091105

REACTIONS (1)
  - BLADDER DISORDER [None]
